FAERS Safety Report 11507461 (Version 1)
Quarter: 2015Q3

REPORT INFORMATION
  Report Type: Spontaneous
  Country: US (occurrence: US)
  Receive Date: 20150903
  Receipt Date: 20150903
  Transmission Date: 20151125
  Serious: No
  Sender: FDA-Public Use
  Company Number: US-ELI_LILLY_AND_COMPANY-US200908002611

PATIENT
  Sex: Male

DRUGS (10)
  1. LEVOTHYROXINE. [Concomitant]
     Active Substance: LEVOTHYROXINE
  2. CLONIDINE. [Concomitant]
     Active Substance: CLONIDINE
  3. FOLIC ACID. [Concomitant]
     Active Substance: FOLIC ACID
  4. WARFARIN [Concomitant]
     Active Substance: WARFARIN
  5. LOVASTATIN. [Concomitant]
     Active Substance: LOVASTATIN
  6. OSCAL 500-D [Concomitant]
  7. CALCITROL                          /00508501/ [Concomitant]
     Active Substance: CALCIUM CARBONATE\ERGOCALCIFEROL\RETINOL
  8. HUMALOG MIX75/25 [Suspect]
     Active Substance: INSULIN LISPRO
     Indication: TYPE 2 DIABETES MELLITUS
     Dosage: 15 U, 2/D
     Dates: start: 1999
  9. HUMALOG MIX75/25 [Suspect]
     Active Substance: INSULIN LISPRO
     Dosage: 15 U, 2/D
  10. NIFEDICAL XL [Concomitant]
     Active Substance: NIFEDIPINE

REACTIONS (4)
  - Parkinson^s disease [Not Recovered/Not Resolved]
  - Visual impairment [Not Recovered/Not Resolved]
  - Drug prescribing error [Not Recovered/Not Resolved]
  - Cataract [Not Recovered/Not Resolved]

NARRATIVE: CASE EVENT DATE: 2001
